FAERS Safety Report 5386146-2 (Version None)
Quarter: 2007Q3

REPORT INFORMATION
  Report Type: 
  Country: None (occurrence: None)
  Receive Date: 20070711
  Receipt Date: 20070711
  Transmission Date: 20080115
  Serious: Yes (Life-Threatening, Hospitalization)
  Sender: FDA-Public Use
  Company Number: None

PATIENT
  Age: 26 Year
  Sex: Female
  Weight: 86.1834 kg

DRUGS (3)
  1. NUVARING [Suspect]
     Indication: CONTRACEPTION
     Dosage: 0.120MG/0.015MG 3 WEEKS INTRAVAGINAL
     Dates: start: 20060629, end: 20061013
  2. ALLEGRA D 24 HOUR [Concomitant]
  3. NASONEX [Concomitant]

REACTIONS (1)
  - THROMBOSIS [None]
